FAERS Safety Report 8953242 (Version 1)
Quarter: 2012Q4

REPORT INFORMATION
  Report Type: 
  Country: US (occurrence: US)
  Receive Date: 20121206
  Receipt Date: 20121206
  Transmission Date: 20130627
  Serious: No
  Sender: FDA-Public Use
  Company Number: US-009507513-1212USA000910

PATIENT
  Sex: Male
  Weight: 70.3 kg

DRUGS (2)
  1. INVANZ [Suspect]
     Indication: LUNG INFECTION
     Dosage: 2 g, qd
     Route: 042
  2. INVANZ [Suspect]
     Indication: SINUSITIS

REACTIONS (2)
  - Overdose [Unknown]
  - Drug prescribing error [Unknown]
